FAERS Safety Report 7390007-7 (Version None)
Quarter: 2011Q1

REPORT INFORMATION
  Report Type: 
  Country: None (occurrence: None)
  Receive Date: 20110324
  Receipt Date: 20110316
  Transmission Date: 20110831
  Serious: Yes (Hospitalization, Disabling)
  Sender: FDA-Public Use
  Company Number: 2007-163591-NL

PATIENT
  Age: 28 Year
  Sex: Female
  Weight: 120.2 kg

DRUGS (6)
  1. ULTRACET [Concomitant]
  2. DARVOCET [Concomitant]
  3. NAPROXEN [Concomitant]
  4. NUVARING [Suspect]
     Indication: HORMONE REPLACEMENT THERAPY
     Dosage: 1 DF; QM; VAG
     Route: 067
     Dates: start: 20040227, end: 20040801
  5. NUVARING [Suspect]
     Indication: CONTRACEPTION
     Dosage: 1 DF; QM; VAG
     Route: 067
     Dates: start: 20040227, end: 20040801
  6. NUVARING [Suspect]
     Indication: OVARIAN CYST
     Dosage: 1 DF; QM; VAG
     Route: 067
     Dates: start: 20040227, end: 20040801

REACTIONS (44)
  - SINUS BRADYCARDIA [None]
  - ROAD TRAFFIC ACCIDENT [None]
  - ABDOMINAL PAIN [None]
  - VOMITING [None]
  - MUSCLE STRAIN [None]
  - PROTHROMBIN TIME PROLONGED [None]
  - LIPOMA [None]
  - GINGIVAL BLEEDING [None]
  - ARTHRALGIA [None]
  - VAGINAL HAEMORRHAGE [None]
  - SPINAL OSTEOARTHRITIS [None]
  - PELVIC PAIN [None]
  - PULMONARY EMBOLISM [None]
  - DEEP VEIN THROMBOSIS [None]
  - EYE COMPLICATION ASSOCIATED WITH DEVICE [None]
  - VAGINITIS BACTERIAL [None]
  - PAIN IN EXTREMITY [None]
  - INTERVERTEBRAL DISC PROTRUSION [None]
  - SCAR [None]
  - SEROMA [None]
  - UROGENITAL TRICHOMONIASIS [None]
  - ELECTROCARDIOGRAM T WAVE INVERSION [None]
  - LACERATION [None]
  - BREAST TENDERNESS [None]
  - AMENORRHOEA [None]
  - INTERNATIONAL NORMALISED RATIO INCREASED [None]
  - OCULAR HYPERAEMIA [None]
  - BACK PAIN [None]
  - MUSCULOSKELETAL PAIN [None]
  - SARCOMA [None]
  - CHOLELITHIASIS [None]
  - INSOMNIA [None]
  - PARAESTHESIA [None]
  - HAEMOPTYSIS [None]
  - BREAST DISCHARGE [None]
  - IMPAIRED WORK ABILITY [None]
  - HYPOAESTHESIA [None]
  - SUPRAPUBIC PAIN [None]
  - OVARIAN CYST [None]
  - ACTIVATED PARTIAL THROMBOPLASTIN TIME PROLONGED [None]
  - EPISTAXIS [None]
  - NECK PAIN [None]
  - HAEMATOMA [None]
  - NAUSEA [None]
